FAERS Safety Report 6676816-8 (Version None)
Quarter: 2010Q2

REPORT INFORMATION
  Report Type: 
  Country: None (occurrence: None)
  Receive Date: 20100412
  Receipt Date: 20100402
  Transmission Date: 20101027
  Serious: Yes (Other)
  Sender: FDA-Public Use
  Company Number: US-ROCHE-695705

PATIENT
  Sex: Female

DRUGS (13)
  1. AVASTIN [Suspect]
     Indication: OVARIAN CANCER
     Route: 042
     Dates: start: 20090721
  2. DOXIL [Suspect]
     Indication: OVARIAN CANCER
     Route: 042
     Dates: start: 20090721
  3. GABAPENTIN [Concomitant]
  4. DICLOFENAC SODIUM [Concomitant]
  5. SIMVASTIN [Concomitant]
  6. LISINOPRIL [Concomitant]
  7. ATIVAN [Concomitant]
  8. ZANTAC [Concomitant]
  9. ZOVIRAX [Concomitant]
  10. VICODIN [Concomitant]
  11. MAGIC MOUTHWASH NOS [Concomitant]
  12. MOTRIN [Concomitant]
  13. M.V.I. [Concomitant]

REACTIONS (1)
  - BONE DENSITY DECREASED [None]
